FAERS Safety Report 14681419 (Version 7)
Quarter: 2020Q1

REPORT INFORMATION
  Report Type: Spontaneous
  Country: PL (occurrence: PL)
  Receive Date: 20180326
  Receipt Date: 20200109
  Transmission Date: 20200409
  Serious: Yes (Hospitalization, Other)
  Sender: FDA-Public Use
  Company Number: PL-PFIZER INC-2017427744

PATIENT
  Age: 24 Year
  Sex: Male

DRUGS (14)
  1. ETOPOSIDE. [Suspect]
     Active Substance: ETOPOSIDE
     Indication: TESTIS CANCER
     Dosage: DOSES ADEQUATE TO THE RENAL FUNCTION
  2. MEROPENEM. [Concomitant]
     Active Substance: MEROPENEM
     Indication: FEBRILE NEUTROPENIA
  3. KCL [Concomitant]
     Active Substance: POTASSIUM CHLORIDE
     Dosage: 60 MEQ
  4. IFOSFAMIDE. [Suspect]
     Active Substance: IFOSFAMIDE
     Indication: TESTIS CANCER
     Dosage: FULL DOSES
     Dates: start: 20160901, end: 20161101
  5. VANCOMYCIN [Concomitant]
     Active Substance: VANCOMYCIN
     Indication: FEBRILE NEUTROPENIA
  6. ADDAMEL N [Concomitant]
     Active Substance: CHROMIC CHLORIDE\CUPROUS CHLORIDE\FERRIC CHLORIDE\MANGANESE CHLORIDE\POTASSIUM IODIDE\SODIUM FLUORIDE\SODIUM MOLYBDATE DIHYDRATE\SODIUM SELENITE\ZINC CHLORIDE
  7. CISPLATIN. [Suspect]
     Active Substance: CISPLATIN
     Indication: TESTIS CANCER
     Dosage: DOSES ADEQUATE TO THE RENAL FUNCTION
  8. BLEOMYCIN [Suspect]
     Active Substance: BLEOMYCIN SULFATE
     Indication: TESTIS CANCER
     Dosage: DOSES ADEQUATE TO THE RENAL FUNCTION; BLEOMYCIN 15000 IU POWDER FOR SOLUTION FOR INJECTION/INFUSION
  9. HEPARIN [Concomitant]
     Active Substance: HEPARIN SODIUM
     Dosage: LOW MOLECULAR WEIGHT
  10. PACLITAXEL. [Suspect]
     Active Substance: PACLITAXEL
     Indication: TESTIS CANCER
     Dosage: FULL DOSES
     Dates: start: 20160901, end: 20161101
  11. CARBOPLATIN. [Suspect]
     Active Substance: CARBOPLATIN
     Indication: TESTIS CANCER
     Dosage: AT A DOSE CALCULATED USING CALVERT^S FORMULA
  12. SOLUVIT N [Concomitant]
     Active Substance: VITAMINS
  13. HOLOXAN [Suspect]
     Active Substance: IFOSFAMIDE
     Indication: TESTICULAR CANCER METASTATIC
     Dosage: ADEQUATE DOSES FOR RENAL FUNCTION
  14. VITALIPID N [Concomitant]
     Active Substance: ERGOCALCIFEROL\PHYTONADIONE\TOCOPHEROL\VITAMIN A PALMITATE

REACTIONS (7)
  - Blood disorder [Unknown]
  - Thrombocytopenia [Unknown]
  - Febrile neutropenia [Unknown]
  - Renal failure [Unknown]
  - Anaemia [Unknown]
  - Blood creatinine increased [Recovering/Resolving]
  - Product use in unapproved indication [Unknown]
